FAERS Safety Report 9187538 (Version 3)
Quarter: 2013Q3

REPORT INFORMATION
  Report Type: Spontaneous
  Country: US (occurrence: US)
  Receive Date: 20130325
  Receipt Date: 20130812
  Transmission Date: 20140515
  Serious: No
  Sender: FDA-Public Use
  Company Number: PHEH2013US006494

PATIENT
  Sex: Male

DRUGS (10)
  1. FANAPT [Suspect]
     Indication: ASPERGER^S DISORDER
     Dosage: 2 MG, UNK
  2. FANAPT [Suspect]
     Dosage: 4 MG, DAILY
     Dates: start: 20130301, end: 20130320
  3. SEROQUEL [Suspect]
     Dosage: UNK UKN, UNK
  4. CLONAZEPAM [Concomitant]
     Indication: ANXIETY
     Dosage: 0.5 MG, DAILY
     Route: 048
  5. VENLAFAXINE [Concomitant]
     Dosage: UNK UKN, UNK
  6. AZATHIOPRINE [Concomitant]
     Dosage: UNK UKN, UNK
  7. PENTASA [Concomitant]
     Dosage: UNK UKN, UNK
  8. MELATONIN [Concomitant]
     Dosage: UNK UKN, UNK
  9. EFFEXOR [Concomitant]
     Indication: DEPRESSION
     Dosage: 100 MG, TID
     Route: 048
  10. EFFEXOR [Concomitant]
     Indication: ANXIETY

REACTIONS (3)
  - Initial insomnia [Recovered/Resolved]
  - Mental disorder [Unknown]
  - Drug ineffective [Unknown]
